FAERS Safety Report 7606006-3 (Version None)
Quarter: 2011Q3

REPORT INFORMATION
  Report Type: 
  Country: None (occurrence: None)
  Receive Date: 20110713
  Receipt Date: 20110630
  Transmission Date: 20111222
  Serious: Yes (Other)
  Sender: FDA-Public Use
  Company Number: PHFR2011GB01949

PATIENT
  Sex: Male
  Weight: 63.1 kg

DRUGS (2)
  1. CLOZAPINE [Suspect]
     Indication: SCHIZOPHRENIA, PARANOID TYPE
     Route: 048
     Dates: start: 20110309, end: 20110311
  2. PROCYCLIDINE HYDROCHLORIDE 2MG TAB [Concomitant]
     Dosage: 5 MG, TID
     Route: 048
     Dates: start: 20110301

REACTIONS (3)
  - HYPERPYREXIA [None]
  - BLOOD PRESSURE FLUCTUATION [None]
  - TACHYCARDIA [None]
